FAERS Safety Report 6077868-9 (Version None)
Quarter: 2009Q1

REPORT INFORMATION
  Report Type: 
  Country: None (occurrence: None)
  Receive Date: 20090213
  Receipt Date: 20090203
  Transmission Date: 20090719
  Serious: Yes (Other)
  Sender: FDA-Public Use
  Company Number: CN-CELGENEUS-035-20785-09020332

PATIENT

DRUGS (7)
  1. THALOMID [Suspect]
     Indication: MULTIPLE MYELOMA
     Route: 048
  2. BORTEZOMIB [Suspect]
     Indication: MULTIPLE MYELOMA
     Route: 051
  3. EPIRUBICIN [Suspect]
     Indication: MULTIPLE MYELOMA
     Route: 051
  4. DEXAMETHASONE TAB [Suspect]
     Indication: MULTIPLE MYELOMA
     Route: 065
  5. IMMUNE GLOBULIN INTRAVENOUS (HUMAN) [Concomitant]
     Indication: INFECTION PROPHYLAXIS
     Route: 051
  6. DIPHOSPHONATE PAMIDRONIC ACID [Concomitant]
     Route: 065
  7. ONDANSETRON [Concomitant]
     Indication: PROPHYLAXIS
     Route: 051

REACTIONS (15)
  - ANOREXIA [None]
  - ASTHENIA [None]
  - CONSTIPATION [None]
  - ELECTROCARDIOGRAM ST-T CHANGE [None]
  - ELECTROCARDIOGRAM T WAVE ABNORMAL [None]
  - HEPATIC FUNCTION ABNORMAL [None]
  - HERPES ZOSTER [None]
  - INSOMNIA [None]
  - NEUROPATHY PERIPHERAL [None]
  - NEUTROPENIA [None]
  - SEPSIS [None]
  - SINUS BRADYCARDIA [None]
  - SKIN LESION [None]
  - SWELLING [None]
  - THROMBOCYTOPENIA [None]
